FAERS Safety Report 23682709 (Version 1)
Quarter: 2024Q1

REPORT INFORMATION
  Report Type: Spontaneous
  Country: CN (occurrence: CN)
  Receive Date: 20240328
  Receipt Date: 20240328
  Transmission Date: 20240409
  Serious: Yes (Life-Threatening, Other)
  Sender: FDA-Public Use
  Company Number: CN-BAYER-2024A046149

PATIENT
  Age: 65 Year
  Sex: Female

DRUGS (2)
  1. ULTRAVIST [Suspect]
     Active Substance: IOPROMIDE
     Indication: Computerised tomogram abdomen
     Dosage: 80 ML, ONCE
     Route: 042
     Dates: start: 20240322, end: 20240322
  2. ULTRAVIST [Suspect]
     Active Substance: IOPROMIDE
     Indication: Abdominal pain

REACTIONS (5)
  - Loss of consciousness [Recovering/Resolving]
  - Blood pressure decreased [Recovering/Resolving]
  - Pruritus [Recovering/Resolving]
  - Hyperhidrosis [Recovering/Resolving]
  - Dizziness [Recovering/Resolving]

NARRATIVE: CASE EVENT DATE: 20240322
